FAERS Safety Report 7595705-8 (Version None)
Quarter: 2011Q3

REPORT INFORMATION
  Report Type: 
  Country: None (occurrence: None)
  Receive Date: 20110707
  Receipt Date: 20110629
  Transmission Date: 20111222
  Serious: Yes (Hospitalization)
  Sender: FDA-Public Use
  Company Number: US-ABBOTT-11P-163-0834743-00

PATIENT
  Sex: Female
  Weight: 88.984 kg

DRUGS (7)
  1. HUMIRA [Suspect]
     Dates: end: 20100923
  2. METAXALONE [Concomitant]
     Indication: PRODUCT USED FOR UNKNOWN INDICATION
  3. HUMIRA [Suspect]
     Indication: RHEUMATOID ARTHRITIS
     Dates: start: 20110501
  4. PLAQUENIL [Concomitant]
     Indication: RHEUMATOID ARTHRITIS
     Dates: start: 19930101
  5. AMBIEN [Concomitant]
     Indication: INSOMNIA
  6. AMBIEN [Concomitant]
     Indication: FIBROMYALGIA
  7. DIFLUNISAL [Concomitant]
     Indication: RHEUMATOID ARTHRITIS
     Dosage: 500 MG ANTIINFAL PAIN BID
     Dates: start: 20110501

REACTIONS (5)
  - BACK PAIN [None]
  - ARTHRITIS [None]
  - WOUND INFECTION [None]
  - OVARIAN NEOPLASM [None]
  - ARTHRALGIA [None]
